FAERS Safety Report 13790494 (Version 1)
Quarter: 2017Q3

REPORT INFORMATION
  Report Type: Spontaneous
  Country: RO (occurrence: RO)
  Receive Date: 20170725
  Receipt Date: 20170725
  Transmission Date: 20171127
  Serious: Yes (Hospitalization, Other)
  Sender: FDA-Public Use
  Company Number: RO-GLAXOSMITHKLINE-RO2017GSK114227

PATIENT
  Age: 15 Year
  Sex: Female

DRUGS (1)
  1. LAMOTRIGINE. [Suspect]
     Active Substance: LAMOTRIGINE
     Indication: EPILEPSY

REACTIONS (11)
  - Pain [Recovering/Resolving]
  - Rash maculo-papular [Recovering/Resolving]
  - Mucosal erosion [Recovering/Resolving]
  - Mucosal ulceration [Recovering/Resolving]
  - Conjunctival oedema [Recovering/Resolving]
  - Rash vesicular [Recovering/Resolving]
  - Conjunctival ulcer [Recovering/Resolving]
  - Pyrexia [Recovering/Resolving]
  - Oral mucosa erosion [Recovering/Resolving]
  - Vulvitis [Recovering/Resolving]
  - Toxic epidermal necrolysis [Recovering/Resolving]
